FAERS Safety Report 6681019-7 (Version None)
Quarter: 2010Q2

REPORT INFORMATION
  Report Type: 
  Country: None (occurrence: None)
  Receive Date: 20100414
  Receipt Date: 20100409
  Transmission Date: 20101027
  Serious: Yes (Life-Threatening)
  Sender: FDA-Public Use
  Company Number: US-JNJFOC-20100402256

PATIENT
  Age: 43 Year
  Sex: Male

DRUGS (7)
  1. ULTRAM [Suspect]
     Indication: DRUG USE FOR UNKNOWN INDICATION
     Dosage: EXACT DOSE UNKNOWN BUT CALCULATED FROM TABLETS MISSING FROM BOTTLE (42 DOSES)
     Route: 065
  2. SOMA [Suspect]
     Indication: DRUG USE FOR UNKNOWN INDICATION
     Route: 065
  3. COCAINE [Suspect]
     Indication: DRUG USE FOR UNKNOWN INDICATION
     Route: 065
  4. ANTICONVULSANT (NOS) [Concomitant]
  5. CORTICOSTEROID [Concomitant]
  6. ACETAMINOPHEN [Concomitant]
  7. ACETYLSALICYLIC ACID [Concomitant]

REACTIONS (5)
  - BLOOD PRESSURE INCREASED [None]
  - CONFUSIONAL STATE [None]
  - CONVULSION [None]
  - NYSTAGMUS [None]
  - OVERDOSE [None]
